FAERS Safety Report 5529779-2 (Version None)
Quarter: 2007Q4

REPORT INFORMATION
  Report Type: 
  Country: None (occurrence: None)
  Receive Date: 20071129
  Receipt Date: 20070614
  Transmission Date: 20080405
  Serious: No
  Sender: FDA-Public Use
  Company Number: US-ABBOTT-07P-163-0371775-00

PATIENT
  Sex: Female
  Weight: 67.646 kg

DRUGS (4)
  1. MERIDIA [Suspect]
     Indication: WEIGHT DECREASED
     Route: 048
     Dates: start: 20070215, end: 20070301
  2. MERIDIA [Suspect]
     Route: 048
     Dates: start: 20070101, end: 20070215
  3. RISEDRONATE SODIUM [Concomitant]
     Indication: OSTEOPOROSIS
  4. BIRTH CONTROL PILLS [Concomitant]
     Indication: CONTRACEPTION
     Route: 048

REACTIONS (1)
  - LIPOMA [None]
